FAERS Safety Report 4439472-5 (Version None)
Quarter: 2004Q3

REPORT INFORMATION
  Report Type: 
  Country: None (occurrence: None)
  Receive Date: 20040728
  Receipt Date: 20040310
  Transmission Date: 20050211
  Serious: No
  Sender: FDA-Public Use
  Company Number: USA040361680

PATIENT
  Age: 25 Year
  Sex: Male

DRUGS (2)
  1. STRATTERA [Suspect]
     Indication: ANXIETY
     Dosage: 25 MG AT NOON
     Dates: start: 20040309
  2. STRATTERA [Suspect]
     Indication: DISTURBANCE IN ATTENTION
     Dosage: 25 MG AT NOON
     Dates: start: 20040309

REACTIONS (4)
  - FATIGUE [None]
  - FEELING ABNORMAL [None]
  - PANIC DISORDER [None]
  - PRURITUS [None]
